FAERS Safety Report 18870549 (Version 1)
Quarter: 2021Q1

REPORT INFORMATION
  Report Type: Spontaneous
  Country: IT (occurrence: IT)
  Receive Date: 20210209
  Receipt Date: 20210209
  Transmission Date: 20210420
  Serious: Yes (Other)
  Sender: FDA-Public Use
  Company Number: IT-SEATTLE GENETICS-2021SGN00571

PATIENT

DRUGS (1)
  1. ADCETRIS [Suspect]
     Active Substance: BRENTUXIMAB VEDOTIN
     Indication: T-CELL LYMPHOMA
     Dosage: 1.8 MILLIGRAM/KILOGRAM
     Route: 065

REACTIONS (5)
  - Rash [Unknown]
  - Dermatitis exfoliative generalised [Unknown]
  - Cutaneous T-cell lymphoma [Unknown]
  - Neuropathy peripheral [Unknown]
  - Alopecia [Unknown]
